FAERS Safety Report 4579617-X (Version None)
Quarter: 2005Q1

REPORT INFORMATION
  Report Type: 
  Country: None (occurrence: None)
  Receive Date: 20050210
  Receipt Date: 20050210
  Transmission Date: 20050727
  Serious: Yes (Hospitalization)
  Sender: FDA-Public Use
  Company Number: None

PATIENT
  Age: 62 Year
  Sex: Female
  Weight: 68 kg

DRUGS (9)
  1. DAPTOMYCIN 500 MG VIAL (50MG/ML) CUBIST PHARMACEUTICALS [Suspect]
     Indication: STAPHYLOCOCCAL BACTERAEMIA
     Dosage: 420 MG (8.4ML) IN NACL 0.9% IV @ 100ML/HR X 1 HR QD
     Route: 042
     Dates: start: 20040731
  2. DOCUSATE SODIUM [Concomitant]
  3. ESOMEPRAZOLE [Concomitant]
  4. BENZOCAINE LOZENGE [Concomitant]
  5. HYDROCODONE BITARTRATE + ACETAMINOPHEN [Concomitant]
  6. IBUPROFEN [Concomitant]
  7. REGULAR INSULIN [Concomitant]
  8. TEMAZEPAM [Concomitant]
  9. POTASSIUM CHLORIDE [Concomitant]

REACTIONS (2)
  - BLOOD IRON DECREASED [None]
  - BLOOD TEST ABNORMAL [None]
